FAERS Safety Report 15362641 (Version 1)
Quarter: 2018Q3

REPORT INFORMATION
  Report Type: Spontaneous
  Country: US (occurrence: US)
  Receive Date: 20180831
  Receipt Date: 20180831
  Transmission Date: 20181010
  Serious: Yes (Disabling, Other)
  Sender: FDA-Public Use
  Company Number: None

PATIENT
  Age: 75 Year
  Sex: Female
  Weight: 83.91 kg

DRUGS (3)
  1. LIPITOR [Concomitant]
     Active Substance: ATORVASTATIN CALCIUM
  2. VENLAFAXINE [Suspect]
     Active Substance: VENLAFAXINE HYDROCHLORIDE
     Indication: DEPRESSION
     Dosage: ?          OTHER FREQUENCY:1?2 TABLETS DAILY;?
     Route: 048
  3. VITAMINS AND MINERALS [Concomitant]

REACTIONS (5)
  - Basedow^s disease [None]
  - Discomfort [None]
  - Dizziness [None]
  - Feeling abnormal [None]
  - Withdrawal syndrome [None]
